FAERS Safety Report 25610450 (Version 2)
Quarter: 2025Q3

REPORT INFORMATION
  Report Type: Spontaneous
  Country: CN (occurrence: CN)
  Receive Date: 20250728
  Receipt Date: 20250805
  Transmission Date: 20251021
  Serious: Yes (Death)
  Sender: ROCHE
  Company Number: CN-ROCHE-10000344822

PATIENT
  Age: 84 Year
  Sex: Male

DRUGS (3)
  1. MYCOPHENOLATE MOFETIL [Suspect]
     Active Substance: MYCOPHENOLATE MOFETIL
     Indication: Lung transplant
     Route: 048
     Dates: start: 20150501, end: 20250630
  2. TACROLIMUS [Suspect]
     Active Substance: TACROLIMUS
     Indication: Lung transplant
     Route: 048
     Dates: start: 20150501, end: 20250630
  3. PREDNISONE [Concomitant]
     Active Substance: PREDNISONE
     Dosage: ANTI-REJECTION THERAPY

REACTIONS (3)
  - Infection in an immunocompromised host [Fatal]
  - Off label use [Fatal]
  - Septic shock [Fatal]

NARRATIVE: CASE EVENT DATE: 20250628
